APPROVED DRUG PRODUCT: ZINC SULFATE
Active Ingredient: ZINC SULFATE
Strength: EQ 30MG BASE/10ML (EQ 3MG BASE/ML)
Dosage Form/Route: SOLUTION;INTRAVENOUS
Application: A216249 | Product #002 | TE Code: AP
Applicant: GLAND PHARMA LTD
Approved: May 3, 2022 | RLD: No | RS: No | Type: RX